FAERS Safety Report 8285510-1 (Version None)
Quarter: 2012Q2

REPORT INFORMATION
  Report Type: 
  Country: None (occurrence: None)
  Receive Date: 20120413
  Receipt Date: 20110623
  Transmission Date: 20120825
  Serious: No
  Sender: FDA-Public Use
  Company Number: US-ASTRAZENECA-2010SE52737

PATIENT
  Age: 51 Year
  Sex: Female

DRUGS (2)
  1. NEXIUM [Suspect]
     Route: 048
  2. CRESTOR [Suspect]
     Route: 048

REACTIONS (10)
  - VOMITING [None]
  - ABDOMINAL PAIN UPPER [None]
  - DIZZINESS [None]
  - PHARYNGEAL ULCERATION [None]
  - ABDOMINAL DISCOMFORT [None]
  - NAUSEA [None]
  - DRUG DOSE OMISSION [None]
  - DYSPEPSIA [None]
  - MALAISE [None]
  - RETCHING [None]
